FAERS Safety Report 4595824-4 (Version None)
Quarter: 2005Q1

REPORT INFORMATION
  Report Type: 
  Country: None (occurrence: None)
  Receive Date: 20050224
  Receipt Date: 20050214
  Transmission Date: 20050727
  Serious: Yes (Hospitalization, Other)
  Sender: FDA-Public Use
  Company Number: 200510109BFR

PATIENT
  Age: 71 Year
  Sex: Male

DRUGS (1)
  1. MOXIFLOXACIN HYDROCHLORIDE [Suspect]
     Indication: BRONCHITIS
     Dosage: 400 MG, TOTAL DAILY, ORAL
     Route: 048
     Dates: start: 20041006, end: 20041010

REACTIONS (4)
  - ATRIAL FLUTTER [None]
  - CARDIAC FAILURE [None]
  - PLEURAL EFFUSION [None]
  - PLEURISY [None]
